FAERS Safety Report 8615367-8 (Version None)
Quarter: 2012Q3

REPORT INFORMATION
  Report Type: 
  Country: None (occurrence: None)
  Receive Date: 20120823
  Receipt Date: 20120814
  Transmission Date: 20120928
  Serious: Yes (Disabling, Other)
  Sender: FDA-Public Use
  Company Number: US-009507513-1206USA04699

PATIENT

DRUGS (1)
  1. FOSAMAX [Suspect]
     Dosage: UNK
     Route: 048

REACTIONS (18)
  - FEMUR FRACTURE [None]
  - DIABETES MELLITUS [None]
  - BONE FRAGMENTATION [None]
  - TOOTH EXTRACTION [None]
  - ARTHRALGIA [None]
  - JOINT EFFUSION [None]
  - HIP SURGERY [None]
  - PATELLA FRACTURE [None]
  - OSTEOPENIA [None]
  - INTERNAL FIXATION OF FRACTURE [None]
  - STRESS FRACTURE [None]
  - VITAMIN D DEFICIENCY [None]
  - OSTEOPOROSIS [None]
  - CALCIUM DEFICIENCY [None]
  - MEDICAL DEVICE REMOVAL [None]
  - LOW TURNOVER OSTEOPATHY [None]
  - ARTHROPATHY [None]
  - PERIODONTAL DISEASE [None]
